FAERS Safety Report 24235117 (Version 2)
Quarter: 2024Q3

REPORT INFORMATION
  Report Type: Spontaneous
  Country: US (occurrence: US)
  Receive Date: 20240821
  Receipt Date: 20240923
  Transmission Date: 20241016
  Serious: Yes (Other)
  Sender: BRISTOL MYERS SQUIBB
  Company Number: US-BRISTOL-MYERS SQUIBB COMPANY-2024-129179

PATIENT
  Age: 73 Year
  Sex: Female
  Weight: 99.34 kg

DRUGS (1)
  1. POMALYST [Suspect]
     Active Substance: POMALIDOMIDE
     Indication: Plasma cell myeloma
     Dosage: 3WKSON, 1 WKOFF/21D ON 7D OFF
     Route: 048
     Dates: start: 20240625

REACTIONS (2)
  - Pulmonary thrombosis [Recovering/Resolving]
  - Platelet count decreased [Unknown]
